FAERS Safety Report 8375960-7 (Version None)
Quarter: 2012Q2

REPORT INFORMATION
  Report Type: 
  Country: None (occurrence: None)
  Receive Date: 20120522
  Receipt Date: 20120516
  Transmission Date: 20120825
  Serious: Yes (Death)
  Sender: FDA-Public Use
  Company Number: US-ASTELLAS-2012US000758

PATIENT
  Sex: Female
  Weight: 46 kg

DRUGS (2)
  1. GEMZAR [Suspect]
     Indication: PANCREATIC CARCINOMA
     Dosage: UNK
     Route: 065
  2. TARCEVA [Suspect]
     Indication: PANCREATIC CARCINOMA METASTATIC
     Dosage: 100 MG, UNKNOWN/D
     Route: 048

REACTIONS (5)
  - ABDOMINAL PAIN [None]
  - NEOPLASM MALIGNANT [None]
  - NAUSEA [None]
  - VOMITING [None]
  - DEHYDRATION [None]
